FAERS Safety Report 6869240-6 (Version None)
Quarter: 2010Q3

REPORT INFORMATION
  Report Type: 
  Country: None (occurrence: None)
  Receive Date: 20100722
  Receipt Date: 20080718
  Transmission Date: 20110219
  Serious: No
  Sender: FDA-Public Use
  Company Number: US-PFIZER INC-2008062131

PATIENT
  Sex: Female

DRUGS (2)
  1. CHANTIX [Suspect]
     Indication: EX-TOBACCO USER
     Dates: start: 20080401
  2. ALL OTHER THERAPEUTIC PRODUCTS [Concomitant]
     Indication: RESTLESS LEGS SYNDROME

REACTIONS (1)
  - RESTLESS LEGS SYNDROME [None]
